FAERS Safety Report 18984545 (Version 1)
Quarter: 2021Q1

REPORT INFORMATION
  Report Type: Report from Study
  Country: FR (occurrence: FR)
  Receive Date: 20210309
  Receipt Date: 20210309
  Transmission Date: 20210420
  Serious: Yes (Death)
  Sender: FDA-Public Use
  Company Number: FR-ROCHE-2637476

PATIENT
  Age: 74 Year
  Sex: Female

DRUGS (2)
  1. ATEZOLIZUMAB. [Suspect]
     Active Substance: ATEZOLIZUMAB
     Indication: NON-SMALL CELL LUNG CANCER
     Dosage: LAST DOSE PRIOR TO AE ONSET: 09/DEC/2019
     Route: 042
     Dates: start: 20190624
  2. VINORELBINE [Suspect]
     Active Substance: VINORELBINE TARTRATE
     Indication: NON-SMALL CELL LUNG CANCER
     Dosage: LAST DOSE PRIOR TO AE; 25/DEC/2019
     Route: 048
     Dates: start: 20190624

REACTIONS (1)
  - Neoplasm progression [Fatal]

NARRATIVE: CASE EVENT DATE: 20200309
